FAERS Safety Report 9891440 (Version 2)
Quarter: 2014Q2

REPORT INFORMATION
  Report Type: Spontaneous
  Country: US (occurrence: US)
  Receive Date: 20140212
  Receipt Date: 20140410
  Transmission Date: 20141212
  Serious: No
  Sender: FDA-Public Use
  Company Number: US-PFIZER INC-2014038400

PATIENT
  Sex: Female

DRUGS (9)
  1. NEURONTIN [Suspect]
     Dosage: UNK
  2. ATARAX [Suspect]
     Dosage: UNK
  3. FORMALDEHYDE SOLUTION [Suspect]
     Dosage: UNK
  4. AVAPRO [Suspect]
     Dosage: UNK
  5. CODEINE [Suspect]
     Dosage: UNK
  6. HYDROCODONE [Suspect]
     Dosage: UNK
  7. APAP [Suspect]
     Dosage: UNK
  8. ZESTRIL [Suspect]
     Dosage: UNK
  9. TRAMADOL [Suspect]
     Dosage: UNK

REACTIONS (1)
  - Drug hypersensitivity [Unknown]
